FAERS Safety Report 10543575 (Version 1)
Quarter: 2014Q4

REPORT INFORMATION
  Report Type: Spontaneous
  Country: AE (occurrence: AE)
  Receive Date: 20141027
  Receipt Date: 20141027
  Transmission Date: 20150529
  Serious: Yes (Other)
  Sender: FDA-Public Use
  Company Number: AE-WATSON-2014-22505

PATIENT
  Age: 18 Year
  Sex: Female

DRUGS (9)
  1. SUXAMETHONIUM CHLORIDE (UNKNOWN) [Suspect]
     Active Substance: SUCCINYLCHOLINE CHLORIDE
     Indication: ANAESTHESIA
     Dosage: 100 MG, SINGLE
     Route: 065
  2. OXYTOCIN. [Concomitant]
     Active Substance: OXYTOCIN
     Indication: PRODUCT USED FOR UNKNOWN INDICATION
     Dosage: 5 IU, UNK
     Route: 042
  3. NITROUS OXIDE. [Suspect]
     Active Substance: NITROUS OXIDE
     Indication: ANAESTHESIA
     Dosage: 70 %, UNK
     Route: 065
  4. ATRACURIUM (UNKNOWN) [Suspect]
     Active Substance: ATRACURIUM
     Indication: ANAESTHESIA
     Dosage: 12.5 MG, SINGLE
     Route: 065
  5. THIOPENTAL [Suspect]
     Active Substance: THIOPENTAL
     Indication: ANAESTHESIA
     Dosage: 400 MG, SINGLE
     Route: 065
  6. OXYTOCIN. [Concomitant]
     Active Substance: OXYTOCIN
     Dosage: 20 IU, UNK
     Route: 042
  7. HALOTHANE. [Suspect]
     Active Substance: HALOTHANE
     Indication: ANAESTHESIA
     Dosage: 0.6 %, UNK
     Route: 065
  8. MEPERIDINE HCL [Suspect]
     Active Substance: MEPERIDINE HYDROCHLORIDE
     Indication: ANAESTHESIA
     Dosage: 100 MG, SINGLE
     Route: 065
  9. SALINE [Concomitant]
     Active Substance: SODIUM CHLORIDE
     Indication: PRODUCT USED FOR UNKNOWN INDICATION
     Dosage: UNK
     Route: 042

REACTIONS (5)
  - Plasmodium vivax infection [Recovered/Resolved]
  - Tachycardia [Unknown]
  - Maternal exposure during delivery [Unknown]
  - Infection reactivation [Recovered/Resolved]
  - Plasmodium vivax infection [None]
